FAERS Safety Report 10760067 (Version 2)
Quarter: 2015Q1

REPORT INFORMATION
  Report Type: Spontaneous
  Country: ES (occurrence: ES)
  Receive Date: 20150204
  Receipt Date: 20150206
  Transmission Date: 20150721
  Serious: Yes (Hospitalization)
  Sender: FDA-Public Use
  Company Number: ES-AMGEN-ESPSP2014033714

PATIENT
  Age: 67 Year
  Sex: Female

DRUGS (1)
  1. ENBREL [Suspect]
     Active Substance: ETANERCEPT
     Indication: RHEUMATOID ARTHRITIS
     Dosage: 50 MG, WEEKLY
     Route: 058
     Dates: start: 20140416, end: 201412

REACTIONS (10)
  - Pneumonia [Unknown]
  - Dizziness [Unknown]
  - Injection site inflammation [Unknown]
  - Malaise [Unknown]
  - Injection site erythema [Unknown]
  - Drug ineffective [Unknown]
  - Pyrexia [Unknown]
  - Disorientation [Unknown]
  - Muscular weakness [Unknown]
  - Fall [Unknown]

NARRATIVE: CASE EVENT DATE: 2014
